FAERS Safety Report 4569271-5 (Version None)
Quarter: 2005Q1

REPORT INFORMATION
  Report Type: 
  Country: None (occurrence: None)
  Receive Date: 20050203
  Receipt Date: 20050121
  Transmission Date: 20050727
  Serious: Yes (Hospitalization, Other)
  Sender: FDA-Public Use
  Company Number: US-GLAXOSMITHKLINE-A0541697A

PATIENT
  Age: 34 Year
  Sex: Male
  Weight: 81 kg

DRUGS (1)
  1. TUMS [Suspect]
     Indication: DYSPEPSIA
     Route: 048
     Dates: start: 19950101

REACTIONS (4)
  - ABDOMINAL DISTENSION [None]
  - DYSURIA [None]
  - HEPATIC CIRRHOSIS [None]
  - WEIGHT INCREASED [None]
